FAERS Safety Report 19615370 (Version 7)
Quarter: 2022Q2

REPORT INFORMATION
  Report Type: Spontaneous
  Country: US (occurrence: US)
  Receive Date: 20210727
  Receipt Date: 20220517
  Transmission Date: 20220721
  Serious: Yes (Other)
  Sender: FDA-Public Use
  Company Number: US-GLAXOSMITHKLINE-US2021159136

PATIENT

DRUGS (7)
  1. ZEJULA [Suspect]
     Active Substance: NIRAPARIB
     Indication: Fallopian tube cancer
     Dosage: 200 MG, QD
     Route: 048
     Dates: start: 20210715
  2. ZEJULA [Suspect]
     Active Substance: NIRAPARIB
     Dosage: 100 MG, QD
     Route: 048
  3. ZEJULA [Suspect]
     Active Substance: NIRAPARIB
     Dosage: 200 MG, QD
     Route: 048
  4. ZEJULA [Suspect]
     Active Substance: NIRAPARIB
     Dosage: 100 MG, QD
     Route: 048
     Dates: start: 20210930
  5. ZEJULA [Suspect]
     Active Substance: NIRAPARIB
     Dosage: 100 MG, QD
  6. ZEJULA [Suspect]
     Active Substance: NIRAPARIB
     Dosage: 100 MG, QD
  7. ROSUVASTATIN [Suspect]
     Active Substance: ROSUVASTATIN
     Indication: Blood cholesterol increased
     Dosage: UNK

REACTIONS (25)
  - Neuropathy peripheral [Not Recovered/Not Resolved]
  - Back pain [Unknown]
  - Muscle spasms [Unknown]
  - Hypertension [Recovering/Resolving]
  - Heart rate increased [Unknown]
  - Abdominal pain [Unknown]
  - Nausea [Recovered/Resolved]
  - Burning sensation [Unknown]
  - Pain in extremity [Unknown]
  - Fatigue [Unknown]
  - Full blood count abnormal [Not Recovered/Not Resolved]
  - Malaise [Not Recovered/Not Resolved]
  - Decreased appetite [Recovered/Resolved]
  - Dysgeusia [Recovered/Resolved]
  - Pelvic pain [Unknown]
  - Electrocardiogram abnormal [Unknown]
  - Dyspnoea [Unknown]
  - Red blood cell count decreased [Recovering/Resolving]
  - Taste disorder [Recovered/Resolved]
  - Blood cholesterol increased [Unknown]
  - Weight decreased [Recovered/Resolved]
  - Hypersomnia [Unknown]
  - Arthralgia [Not Recovered/Not Resolved]
  - Myalgia [Unknown]
  - Product dose omission issue [Unknown]

NARRATIVE: CASE EVENT DATE: 20210701
